FAERS Safety Report 8283149-5 (Version None)
Quarter: 2012Q2

REPORT INFORMATION
  Report Type: 
  Country: None (occurrence: None)
  Receive Date: 20120413
  Receipt Date: 20120402
  Transmission Date: 20120825
  Serious: Yes (Hospitalization)
  Sender: FDA-Public Use
  Company Number: FR-GLAXOSMITHKLINE-B0792580A

PATIENT
  Sex: Female

DRUGS (4)
  1. ARIXTRA [Suspect]
     Indication: THROMBOSIS PROPHYLAXIS
     Dosage: 2.5MGML PER DAY
     Route: 058
     Dates: start: 20120117, end: 20120125
  2. TRAMADOL HCL [Concomitant]
     Indication: PAIN
     Dosage: 100MG AS DIRECTED
     Route: 048
     Dates: start: 20120118
  3. KETOPROFEN [Suspect]
     Indication: PELVIC FRACTURE
     Dosage: 100MG TWICE PER DAY
     Route: 048
     Dates: start: 20120118, end: 20120124
  4. AMITRIPTYLINE HCL [Concomitant]
     Indication: NEURALGIA
     Dosage: 40MGML PER DAY
     Route: 048
     Dates: start: 20010201

REACTIONS (3)
  - PAIN IN EXTREMITY [None]
  - MUSCLE HAEMORRHAGE [None]
  - GAIT DISTURBANCE [None]
